FAERS Safety Report 6667602-3 (Version None)
Quarter: 2010Q2

REPORT INFORMATION
  Report Type: 
  Country: None (occurrence: None)
  Receive Date: 20100405
  Receipt Date: 20100329
  Transmission Date: 20101027
  Serious: Yes (Death, Hospitalization, Other)
  Sender: FDA-Public Use
  Company Number: DK-ELI_LILLY_AND_COMPANY-DK201004000426

PATIENT

DRUGS (1)
  1. FONTEX [Suspect]
     Route: 064
     Dates: end: 20080821

REACTIONS (7)
  - CARDIOVASCULAR DISORDER [None]
  - CEREBRAL DISORDER [None]
  - CONVULSION NEONATAL [None]
  - DRUG EXPOSURE DURING PREGNANCY [None]
  - DRUG WITHDRAWAL SYNDROME NEONATAL [None]
  - NEONATAL ANOXIA [None]
  - PREMATURE BABY [None]
